FAERS Safety Report 10514294 (Version 1)
Quarter: 2014Q4

REPORT INFORMATION
  Report Type: Spontaneous
  Country: US (occurrence: US)
  Receive Date: 20141013
  Receipt Date: 20141013
  Transmission Date: 20150528
  Serious: Yes (Hospitalization)
  Sender: FDA-Public Use
  Company Number: US-TEVA-514147USA

PATIENT
  Age: 70 Year
  Sex: Female

DRUGS (13)
  1. SALBUTAMOL [Concomitant]
     Active Substance: ALBUTEROL
     Dosage: 2 PUFFS EVERY 6 HOURS AS NEEDED
     Route: 055
  2. COTRIMOXAZOLE [Suspect]
     Active Substance: SULFAMETHOXAZOLE\TRIMETHOPRIM
     Indication: NOCARDIOSIS
     Dosage: 5 MG/KG EVERY 8 HOURS
     Route: 042
  3. COTRIMOXAZOLE [Suspect]
     Active Substance: SULFAMETHOXAZOLE\TRIMETHOPRIM
     Dosage: TRIMETHOPRIM/SULFAMETHOXAZOLE 800/600MG 2 TABLETS THREE TIMES A DAY
     Route: 050
  4. ASPIRIN. [Concomitant]
     Active Substance: ASPIRIN
     Dosage: 81MG EVERY DAY
     Route: 065
  5. ENOXAPARIN SODIUM. [Concomitant]
     Active Substance: ENOXAPARIN SODIUM
     Indication: THROMBOSIS PROPHYLAXIS
     Dosage: 40MG EVERY DAY
     Route: 058
  6. SALBUTAMOL, IPRATROPIUM BROMIDE [Concomitant]
     Indication: CHRONIC OBSTRUCTIVE PULMONARY DISEASE
     Dosage: 2 PUFFS EVERY 6 HOURS AS NEEDED
     Route: 055
  7. LEVOFLOXACIN. [Concomitant]
     Active Substance: LEVOFLOXACIN
     Dosage: 500MG DAILY
     Route: 065
  8. CILOSTAZOL. [Concomitant]
     Active Substance: CILOSTAZOL
     Route: 050
  9. METHYLPREDNISOLONE. [Suspect]
     Active Substance: METHYLPREDNISOLONE
     Indication: CHRONIC OBSTRUCTIVE PULMONARY DISEASE
     Route: 065
  10. FLUTICASONE PROPIONATE. [Suspect]
     Active Substance: FLUTICASONE PROPIONATE
     Indication: CHRONIC OBSTRUCTIVE PULMONARY DISEASE
     Dosage: 44MCG 2 PUFFS TWICE A DAY
     Route: 055
  11. MONTELUKAST [Concomitant]
     Active Substance: MONTELUKAST SODIUM
     Dosage: 10MG EVERY DAY
     Route: 065
  12. PREDNISONE. [Suspect]
     Active Substance: PREDNISONE
     Indication: CHRONIC OBSTRUCTIVE PULMONARY DISEASE
     Dosage: (TAPER) CURRENT DOSE 60MG
     Route: 065
  13. THEOPHYLLINE [Concomitant]
     Active Substance: THEOPHYLLINE ANHYDROUS
     Route: 065

REACTIONS (3)
  - Urticaria [Unknown]
  - Nocardiosis [Recovered/Resolved]
  - Lung infection [Recovered/Resolved]
